FAERS Safety Report 9503684 (Version 1)
Quarter: 2013Q3

REPORT INFORMATION
  Report Type: Other
  Country: US (occurrence: US)
  Receive Date: 20130906
  Receipt Date: 20130906
  Transmission Date: 20140515
  Serious: Yes (Hospitalization)
  Sender: FDA-Public Use
  Company Number: US-SHIRE-ALL1-2013-06059

PATIENT
  Sex: Male

DRUGS (1)
  1. PROAMATINE [Suspect]
     Indication: PRODUCT USED FOR UNKNOWN INDICATION
     Dosage: 10 MG, 3X/DAY:TID
     Route: 048

REACTIONS (4)
  - Hospitalisation [Unknown]
  - Abnormal loss of weight [Unknown]
  - Hypoaesthesia [Unknown]
  - Pollakiuria [Unknown]
